FAERS Safety Report 10335878 (Version 1)
Quarter: 2014Q3

REPORT INFORMATION
  Report Type: Spontaneous
  Country: US (occurrence: US)
  Receive Date: 20140723
  Receipt Date: 20140723
  Transmission Date: 20150326
  Serious: No
  Sender: FDA-Public Use
  Company Number: US-BRISTOL-MYERS SQUIBB COMPANY-19186972

PATIENT
  Age: 83 Year
  Sex: Male

DRUGS (6)
  1. FOLIC ACID. [Concomitant]
     Active Substance: FOLIC ACID
  2. SYNTHROID [Concomitant]
     Active Substance: LEVOTHYROXINE SODIUM
  3. BABY ASPIRIN [Suspect]
     Active Substance: ASPIRIN
     Indication: ARRHYTHMIA
  4. COUMADIN [Suspect]
     Active Substance: WARFARIN SODIUM
     Indication: ARRHYTHMIA
  5. SIMVASTATIN. [Concomitant]
     Active Substance: SIMVASTATIN
  6. IRON [Concomitant]
     Active Substance: IRON

REACTIONS (1)
  - Haemorrhage [Recovered/Resolved]
